FAERS Safety Report 6910716-0 (Version None)
Quarter: 2010Q3

REPORT INFORMATION
  Report Type: 
  Country: None (occurrence: None)
  Receive Date: 20100806
  Receipt Date: 20100727
  Transmission Date: 20110219
  Serious: Yes (Death)
  Sender: FDA-Public Use
  Company Number: DE-ROCHE-718830

PATIENT
  Sex: Female

DRUGS (2)
  1. AVASTIN [Suspect]
     Indication: ADENOCARCINOMA
     Route: 065
  2. FOLFOX REGIMEN [Suspect]
     Indication: ADENOCARCINOMA
     Route: 065

REACTIONS (1)
  - BRAIN OEDEMA [None]
